FAERS Safety Report 10073732 (Version 1)
Quarter: 2014Q2

REPORT INFORMATION
  Report Type: Report from Study
  Country: US (occurrence: US)
  Receive Date: 20140411
  Receipt Date: 20140411
  Transmission Date: 20141212
  Serious: Yes (Hospitalization, Other)
  Sender: FDA-Public Use
  Company Number: US-ABBVIE-14P-163-1219623-00

PATIENT
  Age: 74 Year
  Sex: Male

DRUGS (7)
  1. HUMIRA [Suspect]
     Indication: RHEUMATOID ARTHRITIS
     Dates: start: 20090706
  2. AMLODIPINE BESYLATE [Concomitant]
     Indication: HYPERTENSION
  3. METHADONE [Concomitant]
     Indication: PAIN
  4. MORPHINE SULFATE [Concomitant]
     Indication: PAIN
  5. OMEPRAZOLE [Concomitant]
     Indication: GASTROOESOPHAGEAL REFLUX DISEASE
  6. PREDNISONE [Concomitant]
     Indication: PRODUCT USED FOR UNKNOWN INDICATION
  7. AMITRIPTYLINE [Concomitant]
     Indication: PRODUCT USED FOR UNKNOWN INDICATION

REACTIONS (10)
  - Foot deformity [Unknown]
  - Haematemesis [Unknown]
  - Impaired healing [Unknown]
  - Blood count abnormal [Unknown]
  - Pulmonary thrombosis [Recovering/Resolving]
  - Thrombosis [Recovering/Resolving]
  - Staphylococcal infection [Unknown]
  - Cholecystectomy [Unknown]
  - Decubitus ulcer [Unknown]
  - Wrong technique in drug usage process [Unknown]
